FAERS Safety Report 17074273 (Version 1)
Quarter: 2019Q4

REPORT INFORMATION
  Report Type: Spontaneous
  Country: US (occurrence: US)
  Receive Date: 20191028
  Receipt Date: 20191028
  Transmission Date: 20200122
  Serious: Yes (Hospitalization)
  Sender: FDA-Public Use
  Company Number: None

PATIENT
  Age: 75 Year
  Sex: Female

DRUGS (14)
  1. ATENOLOL. [Concomitant]
     Active Substance: ATENOLOL
  2. BIOTIN [Concomitant]
     Active Substance: BIOTIN
  3. METOPROL SUC TABLETS [Concomitant]
  4. ONE-A-DAY TABLETS [Concomitant]
  5. PREDNISONE. [Concomitant]
     Active Substance: PREDNISONE
  6. REPATHA [Suspect]
     Active Substance: EVOLOCUMAB
     Route: 058
     Dates: start: 201803
  7. ENALAPR/HCTZ TABLETS [Concomitant]
  8. PEPCID [Concomitant]
     Active Substance: FAMOTIDINE
  9. COCONUT OIL [Concomitant]
     Active Substance: COCONUT OIL
  10. XIFAXAN [Concomitant]
     Active Substance: RIFAXIMIN
  11. CLOPIDOGREL [Concomitant]
     Active Substance: CLOPIDOGREL BISULFATE
  12. FISH OIL CAPSULES [Concomitant]
  13. ASPIRIN. [Concomitant]
     Active Substance: ASPIRIN
  14. FUROSEMIDE. [Concomitant]
     Active Substance: FUROSEMIDE

REACTIONS (2)
  - Infection [None]
  - Therapy cessation [None]

NARRATIVE: CASE EVENT DATE: 20191009
